FAERS Safety Report 7895919-3 (Version None)
Quarter: 2011Q4

REPORT INFORMATION
  Report Type: 
  Country: None (occurrence: None)
  Receive Date: 20111106
  Receipt Date: 20110901
  Transmission Date: 20120403
  Serious: No
  Sender: FDA-Public Use
  Company Number: US-AMGEN-USASP2011044973

PATIENT
  Age: 56 Year
  Sex: Female

DRUGS (3)
  1. PREDNISONE [Concomitant]
  2. METHOTREXATE [Concomitant]
     Dosage: 10 MG, UNK
     Dates: start: 19980101
  3. ENBREL [Suspect]
     Indication: RHEUMATOID ARTHRITIS
     Dosage: 50 MG, QWK
     Dates: start: 19990101, end: 20110818

REACTIONS (12)
  - NECK PAIN [None]
  - DEPRESSED MOOD [None]
  - ROTATOR CUFF SYNDROME [None]
  - FEELING HOT [None]
  - RHEUMATOID ARTHRITIS [None]
  - OSTEOARTHRITIS [None]
  - INTERVERTEBRAL DISC PROTRUSION [None]
  - EPICONDYLITIS [None]
  - ASTHENIA [None]
  - CHILLS [None]
  - MUSCULOSKELETAL PAIN [None]
  - INJECTION SITE PAIN [None]
